FAERS Safety Report 6425918-X (Version None)
Quarter: 2009Q4

REPORT INFORMATION
  Report Type: 
  Country: None (occurrence: None)
  Receive Date: 20091103
  Receipt Date: 20091103
  Transmission Date: 20100525
  Serious: Yes (Life-Threatening)
  Sender: FDA-Public Use
  Company Number: None

PATIENT
  Age: 59 Year
  Sex: Male

DRUGS (1)
  1. DOCETAXEL [Suspect]
     Indication: SQUAMOUS CELL CARCINOMA
     Dosage: 120 MG OTHER IV
     Route: 042
     Dates: start: 20090106, end: 20090106

REACTIONS (3)
  - COUGH [None]
  - RECALL PHENOMENON [None]
  - WHEEZING [None]
